FAERS Safety Report 12213474 (Version 1)
Quarter: 2016Q1

REPORT INFORMATION
  Report Type: Spontaneous
  Country: US (occurrence: None)
  Receive Date: 20160325
  Receipt Date: 20160325
  Transmission Date: 20160526
  Serious: No
  Sender: FDA-Public Use
  Company Number: None

PATIENT
  Sex: Female

DRUGS (2)
  1. TOUJEO [Suspect]
     Active Substance: INSULIN GLARGINE
  2. LISINOPRIL AND HYDROCHLOROTHIAZIDE [Suspect]
     Active Substance: HYDROCHLOROTHIAZIDE\LISINOPRIL

REACTIONS (7)
  - Neuropathy peripheral [None]
  - Nasopharyngitis [None]
  - Wheezing [None]
  - Cough [None]
  - Oropharyngeal pain [None]
  - Impaired healing [None]
  - Carpal tunnel syndrome [None]
